FAERS Safety Report 7115121-2 (Version None)
Quarter: 2010Q4

REPORT INFORMATION
  Report Type: 
  Country: None (occurrence: None)
  Receive Date: 20101116
  Receipt Date: 20101116
  Transmission Date: 20110411
  Serious: No
  Sender: FDA-Public Use
  Company Number: None

PATIENT
  Age: 46 Year
  Sex: Female

DRUGS (8)
  1. AMPYRA [Suspect]
     Dosage: 10MG Q12 HOURS ORALLY
     Route: 048
     Dates: start: 20101012, end: 20101016
  2. VICODIN [Concomitant]
  3. ADVAIR DISKUS 100/50 [Concomitant]
  4. WARFARIN SODIUM [Concomitant]
  5. DSS [Concomitant]
  6. PROAIR HFA [Concomitant]
  7. SENNA [Concomitant]
  8. CALCIUM CARBONATE [Concomitant]

REACTIONS (5)
  - DYSPNOEA [None]
  - MULTIPLE SCLEROSIS [None]
  - MUSCULOSKELETAL CHEST PAIN [None]
  - PAIN IN EXTREMITY [None]
  - PALPITATIONS [None]
